FAERS Safety Report 10305028 (Version 1)
Quarter: 2014Q3

REPORT INFORMATION
  Report Type: Spontaneous
  Country: US (occurrence: None)
  Receive Date: 20140711
  Receipt Date: 20140711
  Transmission Date: 20150326
  Serious: Yes (Hospitalization)
  Sender: FDA-Public Use
  Company Number: None

PATIENT
  Age: 82 Year
  Sex: Female
  Weight: 60 kg

DRUGS (13)
  1. ZOLOFT [Concomitant]
     Active Substance: SERTRALINE HYDROCHLORIDE
  2. NITROSTAT SL [Concomitant]
  3. COREG [Concomitant]
     Active Substance: CARVEDILOL
  4. SYNTHROID [Concomitant]
     Active Substance: LEVOTHYROXINE SODIUM
  5. LASIX ORAL [Concomitant]
  6. PRADAXA [Suspect]
     Active Substance: DABIGATRAN ETEXILATE MESYLATE
     Indication: ATRIAL FIBRILLATION
     Dosage: 1 BID ORAL
     Route: 048
     Dates: start: 20111012, end: 20140709
  7. LIDODERM [Concomitant]
     Active Substance: LIDOCAINE
  8. TYLENOL [Concomitant]
     Active Substance: ACETAMINOPHEN
  9. ALLOPURINOL. [Concomitant]
     Active Substance: ALLOPURINOL
  10. RAMIPRIL. [Concomitant]
     Active Substance: RAMIPRIL
  11. PHENERGAN [Concomitant]
     Active Substance: PROMETHAZINE HYDROCHLORIDE
  12. PRILOSEC [Concomitant]
     Active Substance: OMEPRAZOLE MAGNESIUM
  13. BONIVA [Concomitant]
     Active Substance: IBANDRONATE SODIUM

REACTIONS (1)
  - Anaemia [None]

NARRATIVE: CASE EVENT DATE: 20140709
